FAERS Safety Report 4963878-9 (Version None)
Quarter: 2006Q1

REPORT INFORMATION
  Report Type: 
  Country: None (occurrence: None)
  Receive Date: 20060330
  Receipt Date: 20060309
  Transmission Date: 20060701
  Serious: Yes (Hospitalization)
  Sender: FDA-Public Use
  Company Number: US200603002559

PATIENT
  Sex: Male

DRUGS (2)
  1. HUMALOG [Suspect]
     Indication: DIABETES MELLITUS
  2. LANTUS [Concomitant]

REACTIONS (4)
  - CARDIAC PACEMAKER INSERTION [None]
  - HYPOGLYCAEMIA [None]
  - NERVE INJURY [None]
  - TUMOUR EXCISION [None]
